FAERS Safety Report 8972733 (Version 1)
Quarter: 2012Q4

REPORT INFORMATION
  Report Type: 
  Country: GB (occurrence: GB)
  Receive Date: 20121218
  Receipt Date: 20121218
  Transmission Date: 20130627
  Serious: Yes (Other)
  Sender: FDA-Public Use
  Company Number: GB-TEVA-375758ISR

PATIENT
  Age: 59 Year
  Sex: Male
  Weight: 95.2 kg

DRUGS (5)
  1. TRAZODONE [Suspect]
     Indication: ANXIETY
     Route: 048
     Dates: start: 20121128, end: 20121128
  2. SIMVASTATIN [Concomitant]
  3. CO-CODAMOL [Concomitant]
     Indication: NERVE COMPRESSION
  4. SOMINEX [Concomitant]
  5. LISINOPRIL [Concomitant]

REACTIONS (10)
  - Dyspnoea [Recovered/Resolved]
  - Paraesthesia [Recovered/Resolved]
  - Confusional state [Recovered/Resolved]
  - Anxiety [Recovered/Resolved]
  - Disorientation [Recovered/Resolved]
  - Cyanosis [Recovered/Resolved]
  - Pallor [Recovered/Resolved]
  - Asthenia [Recovering/Resolving]
  - Hypersensitivity [Recovered/Resolved]
  - Fatigue [Recovering/Resolving]
